FAERS Safety Report 4886272-8 (Version None)
Quarter: 2006Q1

REPORT INFORMATION
  Report Type: 
  Country: None (occurrence: None)
  Receive Date: 20060118
  Receipt Date: 20060118
  Transmission Date: 20060701
  Serious: Yes (Death)
  Sender: FDA-Public Use
  Company Number: None

PATIENT
  Age: 43 Year
  Sex: Female
  Weight: 74 kg

DRUGS (2)
  1. DAUNORUBICIN [Suspect]
     Indication: ACUTE MYELOMONOCYTIC LEUKAEMIA
     Dosage: 45 MG/M2 DAILY TIMES 3 DAYS IV
     Route: 042
     Dates: start: 20051229, end: 20051231
  2. CYTARABINE [Suspect]
     Indication: ACUTE MYELOMONOCYTIC LEUKAEMIA
     Dosage: 100 MG/M2 7 DAYS CONT. INFUS IV DRIP
     Route: 041
     Dates: start: 20051229, end: 20060105

REACTIONS (6)
  - APHASIA [None]
  - AUTOANTIBODY POSITIVE [None]
  - AUTOIMMUNE DISORDER [None]
  - BONE MARROW FAILURE [None]
  - HAEMORRHAGE INTRACRANIAL [None]
  - THROMBOCYTOPENIA [None]
